FAERS Safety Report 21714982 (Version 1)
Quarter: 2022Q4

REPORT INFORMATION
  Report Type: Spontaneous
  Country: US (occurrence: US)
  Receive Date: 20221212
  Receipt Date: 20221212
  Transmission Date: 20230113
  Serious: No
  Sender: FDA-Public Use
  Company Number: US-TAKEDA-2022TUS093116

PATIENT
  Sex: Female
  Weight: 83 kg

DRUGS (2)
  1. VYVANSE [Suspect]
     Active Substance: LISDEXAMFETAMINE DIMESYLATE
     Indication: Attention deficit hyperactivity disorder
     Dosage: 70 MILLIGRAM, QD
     Route: 048
     Dates: start: 20220712, end: 20221201
  2. CLONIDINE [Concomitant]
     Active Substance: CLONIDINE
     Indication: Disturbance in attention
     Dosage: UNK
     Route: 065

REACTIONS (4)
  - Disturbance in attention [Unknown]
  - Fatigue [Unknown]
  - Headache [Unknown]
  - Drug effect less than expected [Unknown]
